FAERS Safety Report 9622784 (Version 2)
Quarter: 2014Q2

REPORT INFORMATION
  Report Type: Spontaneous
  Country: AU (occurrence: AU)
  Receive Date: 20131015
  Receipt Date: 20140530
  Transmission Date: 20141212
  Serious: Yes (Other)
  Sender: FDA-Public Use
  Company Number: AU-ABBVIE-13P-008-1157626-00

PATIENT
  Sex: Female

DRUGS (3)
  1. SODIUM VALPROATE [Suspect]
     Indication: EPILEPSY
  2. CARBAMAZEPINE [Suspect]
     Indication: EPILEPSY
  3. TOPIRAMATE [Suspect]
     Indication: EPILEPSY

REACTIONS (1)
  - Foetal death [Unknown]
